FAERS Safety Report 23051665 (Version 1)
Quarter: 2023Q4

REPORT INFORMATION
  Report Type: Spontaneous
  Country: US (occurrence: US)
  Receive Date: 20231010
  Receipt Date: 20231010
  Transmission Date: 20240110
  Serious: No
  Sender: FDA-Public Use
  Company Number: US-Sprout Pharmaceuticals, Inc.-2023SP000021

PATIENT
  Age: 32 Year
  Sex: Female

DRUGS (2)
  1. ADDYI [Suspect]
     Active Substance: FLIBANSERIN
     Indication: Product used for unknown indication
     Dosage: RX # 451749
     Route: 048
     Dates: start: 202212
  2. HYDROXYZINE [Concomitant]
     Active Substance: HYDROXYZINE HYDROCHLORIDE
     Indication: Product used for unknown indication

REACTIONS (5)
  - Feeling drunk [Unknown]
  - Gait disturbance [Unknown]
  - Dyspnoea [Unknown]
  - Dizziness [Unknown]
  - Insomnia [Unknown]

NARRATIVE: CASE EVENT DATE: 20221201
